FAERS Safety Report 5642792-X (Version None)
Quarter: 2008Q1

REPORT INFORMATION
  Report Type: 
  Country: None (occurrence: None)
  Receive Date: 20080131
  Receipt Date: 20071003
  Transmission Date: 20080703
  Serious: Yes (Hospitalization, Other)
  Sender: FDA-Public Use
  Company Number: PHEH2007US13177

PATIENT
  Age: 61 Year
  Sex: Male
  Weight: 63.5 kg

DRUGS (2)
  1. ALISKIREN(ALISKIREN) TABLET [Suspect]
     Indication: HYPERTENSION
     Dosage: 150 MG, QD, ORAL
     Route: 048
     Dates: start: 20070601, end: 20070729
  2. LISINOPRIL [Concomitant]
     Indication: HYPERTENSION
     Dates: start: 20060101

REACTIONS (5)
  - ANGIOEDEMA [None]
  - C1 ESTERASE INHIBITOR DECREASED [None]
  - DROOLING [None]
  - DYSPHAGIA [None]
  - SWOLLEN TONGUE [None]
